FAERS Safety Report 24319318 (Version 2)
Quarter: 2024Q4

REPORT INFORMATION
  Report Type: Report from Study
  Country: IN (occurrence: IN)
  Receive Date: 20240914
  Receipt Date: 20241010
  Transmission Date: 20250114
  Serious: Yes (Death, Hospitalization)
  Sender: ROCHE
  Company Number: IN-ROCHE-10000046691

PATIENT
  Age: 88 Year
  Sex: Male

DRUGS (1)
  1. TECENTRIQ [Suspect]
     Active Substance: ATEZOLIZUMAB
     Indication: Hepatocellular carcinoma
     Route: 042
     Dates: start: 20231129

REACTIONS (9)
  - Asthenia [Unknown]
  - Blood creatinine increased [Unknown]
  - Ascites [Unknown]
  - Diarrhoea [Unknown]
  - Pyrexia [Unknown]
  - General physical health deterioration [Unknown]
  - Dysentery [Unknown]
  - Malaise [Unknown]
  - Death [Fatal]

NARRATIVE: CASE EVENT DATE: 20241001
